FAERS Safety Report 5281747-4 (Version None)
Quarter: 2007Q1

REPORT INFORMATION
  Report Type: 
  Country: None (occurrence: None)
  Receive Date: 20070330
  Receipt Date: 20070327
  Transmission Date: 20070707
  Serious: Yes (Hospitalization, Disabling)
  Sender: FDA-Public Use
  Company Number: NL-GLAXOSMITHKLINE-B0461352B

PATIENT
  Age: 62 Year
  Sex: Female
  Weight: 48.1 kg

DRUGS (2)
  1. NO THERAPY [Suspect]
     Indication: MALIGNANT NEOPLASM PROGRESSION
     Dates: start: 20060517
  2. AUGMENTIN '125' [Suspect]
     Indication: CELLULITIS
     Dosage: 625MG THREE TIMES PER DAY
     Route: 048

REACTIONS (9)
  - CONFUSIONAL STATE [None]
  - DEHYDRATION [None]
  - DIARRHOEA [None]
  - DRUG HYPERSENSITIVITY [None]
  - ERYTHEMA [None]
  - HYPERNATRAEMIA [None]
  - HYPOALBUMINAEMIA [None]
  - HYPOKALAEMIA [None]
  - NAUSEA [None]
